FAERS Safety Report 5181071-4 (Version None)
Quarter: 2006Q4

REPORT INFORMATION
  Report Type: 
  Country: None (occurrence: None)
  Receive Date: 20061220
  Receipt Date: 20061031
  Transmission Date: 20070319
  Serious: Yes (Other)
  Sender: FDA-Public Use
  Company Number: PHBS2006JP17100

PATIENT

DRUGS (2)
  1. TEGRETOL [Suspect]
     Dosage: 375 MG/DAY
     Route: 048
     Dates: end: 20061030
  2. TEGRETOL [Suspect]
     Dosage: 400 MG/DAY
     Route: 048
     Dates: start: 20061031

REACTIONS (3)
  - ABDOMINAL PAIN [None]
  - GASTROENTERITIS [None]
  - NASOPHARYNGITIS [None]
